FAERS Safety Report 21650784 (Version 4)
Quarter: 2023Q1

REPORT INFORMATION
  Report Type: Report from Study
  Country: US (occurrence: US)
  Receive Date: 20221128
  Receipt Date: 20230117
  Transmission Date: 20230418
  Serious: No
  Sender: FDA-Public Use
  Company Number: US-002147023-NVSC2022US276044

PATIENT
  Sex: Female

DRUGS (1)
  1. ENTRESTO [Suspect]
     Active Substance: SACUBITRIL\VALSARTAN
     Indication: Product used for unknown indication
     Dosage: UNK, BID
     Route: 048
     Dates: start: 202209

REACTIONS (4)
  - Weight fluctuation [Unknown]
  - Somnolence [Recovering/Resolving]
  - Palpitations [Not Recovered/Not Resolved]
  - Dyspnoea [Recovering/Resolving]
